FAERS Safety Report 9263516 (Version 1)
Quarter: 2013Q2

REPORT INFORMATION
  Report Type: Spontaneous
  Country: US (occurrence: US)
  Receive Date: 20130430
  Receipt Date: 20130430
  Transmission Date: 20140414
  Serious: No
  Sender: FDA-Public Use
  Company Number: US-ABBOTT-12P-163-1029447-00

PATIENT
  Age: 70 Year
  Sex: Female
  Weight: 49.94 kg

DRUGS (5)
  1. CREON 6000 [Suspect]
     Indication: PRODUCT USED FOR UNKNOWN INDICATION
     Dosage: 1-2 EACH MEAL AND SOMETIMES 1 WITH SNACK
     Dates: start: 201207
  2. ADVAIR [Concomitant]
     Indication: BRONCHIAL HYPERREACTIVITY
  3. FLONASE [Concomitant]
     Indication: BRONCHIAL HYPERREACTIVITY
  4. COMBIVENT [Concomitant]
     Indication: BRONCHIAL HYPERREACTIVITY
  5. SINGULAIR [Concomitant]
     Indication: BRONCHIAL HYPERREACTIVITY

REACTIONS (4)
  - Bronchial hyperreactivity [Not Recovered/Not Resolved]
  - Flatulence [Not Recovered/Not Resolved]
  - Vision blurred [Not Recovered/Not Resolved]
  - Respiratory tract congestion [Not Recovered/Not Resolved]
